FAERS Safety Report 25463263 (Version 1)
Quarter: 2025Q2

REPORT INFORMATION
  Report Type: Spontaneous
  Country: IT (occurrence: IT)
  Receive Date: 20250620
  Receipt Date: 20250620
  Transmission Date: 20250717
  Serious: Yes (Other)
  Sender: BAUSCH AND LOMB
  Company Number: IT-BAUSCH-BL-2025-007425

PATIENT
  Sex: Female

DRUGS (2)
  1. RIBAVIRIN [Suspect]
     Active Substance: RIBAVIRIN
     Indication: Chronic hepatitis C
     Route: 065
  2. INTERFERON [Suspect]
     Active Substance: INTERFERON
     Indication: Chronic hepatitis C
     Route: 065

REACTIONS (2)
  - Granulocytopenia [Unknown]
  - Psoriasis [Recovered/Resolved]
